FAERS Safety Report 4580079-7 (Version None)
Quarter: 2005Q1

REPORT INFORMATION
  Report Type: 
  Country: None (occurrence: None)
  Receive Date: 20050214
  Receipt Date: 20050202
  Transmission Date: 20050727
  Serious: Yes (Other)
  Sender: FDA-Public Use
  Company Number: JP-JNJFOC-20050201064

PATIENT
  Age: 37 Year
  Sex: Female

DRUGS (2)
  1. TAVANIC [Suspect]
     Route: 049
  2. TAVANIC [Suspect]
     Route: 049

REACTIONS (6)
  - ATRIAL FIBRILLATION [None]
  - ATRIAL FLUTTER [None]
  - HEPATIC ENZYME ABNORMAL [None]
  - LIVER DISORDER [None]
  - MEDICATION ERROR [None]
  - OVERDOSE [None]
